FAERS Safety Report 9122408 (Version 1)
Quarter: 2013Q1

REPORT INFORMATION
  Report Type: Spontaneous
  Country: FR (occurrence: FR)
  Receive Date: 20130114
  Receipt Date: 20130114
  Transmission Date: 20140127
  Serious: Yes (Life-Threatening)
  Sender: FDA-Public Use
  Company Number: FR-ASTRAZENECA-2013SE01618

PATIENT
  Age: 65 Year
  Sex: Male

DRUGS (5)
  1. XYLOCAINE [Suspect]
     Indication: ANAESTHESIA
     Dates: start: 20110509, end: 20110509
  2. HEPARINE CHOAY [Suspect]
     Indication: ARTERIOGRAM CORONARY
     Route: 042
     Dates: start: 20110509, end: 20110509
  3. HEXABRIX [Suspect]
     Indication: ARTERIOGRAM CORONARY
     Dates: start: 20110509, end: 20110509
  4. METOCLOPRAMIDE [Suspect]
     Indication: PREMEDICATION
     Route: 042
     Dates: start: 20110509, end: 20110509
  5. BETADINE [Suspect]
     Indication: INFECTION PROPHYLAXIS
     Route: 003
     Dates: start: 20110509, end: 20110509

REACTIONS (1)
  - Anaphylactic shock [Recovered/Resolved]
